FAERS Safety Report 13048047 (Version 1)
Quarter: 2016Q4

REPORT INFORMATION
  Report Type: Spontaneous
  Country: US (occurrence: US)
  Receive Date: 20161220
  Receipt Date: 20161220
  Transmission Date: 20170207
  Serious: Yes (Life-Threatening, Hospitalization)
  Sender: FDA-Public Use
  Company Number: None

PATIENT
  Age: 77 Year
  Sex: Male
  Weight: 115.5 kg

DRUGS (1)
  1. NINTEDANIB, 150MG BOEHRINGER INGELHEIM [Suspect]
     Active Substance: NINTEDANIB
     Indication: PULMONARY FIBROSIS
     Route: 048

REACTIONS (5)
  - Haemoglobin decreased [None]
  - Haemoptysis [None]
  - Haematocrit decreased [None]
  - Pulmonary haemorrhage [None]
  - Dyspnoea [None]

NARRATIVE: CASE EVENT DATE: 20161216
